FAERS Safety Report 25206873 (Version 1)
Quarter: 2025Q2

REPORT INFORMATION
  Report Type: Spontaneous
  Country: US (occurrence: US)
  Receive Date: 20250417
  Receipt Date: 20250417
  Transmission Date: 20250717
  Serious: No
  Sender: BAYER
  Company Number: US-BAYER-2025A046635

PATIENT
  Age: 7 Year
  Sex: Male

DRUGS (1)
  1. MIRALAX [Suspect]
     Active Substance: POLYETHYLENE GLYCOL 3350
     Indication: Gastrointestinal disorder
     Dosage: WE POUR THE POWDER INTO A 10ML CUP AND THEN DISSOLVE IT IN 9OZ OF WATER, ONCE A DAY. DOSE
     Route: 048

REACTIONS (1)
  - Product use issue [Unknown]
